FAERS Safety Report 8379718-4 (Version None)
Quarter: 2012Q1

REPORT INFORMATION
  Report Type: 
  Country: None (occurrence: None)
  Receive Date: 20120323
  Receipt Date: 20110322
  Transmission Date: 20120608
  Serious: Yes (Hospitalization, Other)
  Sender: FDA-Public Use
  Company Number: 163-21880-11032728

PATIENT
  Age: 57 Year
  Sex: Male

DRUGS (2)
  1. REVLIMID [Suspect]
     Indication: MULTIPLE MYELOMA
     Dosage: 10 MG, DAILY X 21 DAYS, PO ; 10 MG, DAILY X 21 DAYS, PO
     Route: 048
     Dates: start: 20100525
  2. REVLIMID [Suspect]
     Indication: MULTIPLE MYELOMA
     Dosage: 10 MG, DAILY X 21 DAYS, PO ; 10 MG, DAILY X 21 DAYS, PO
     Route: 048
     Dates: start: 20090922, end: 20100114

REACTIONS (1)
  - PNEUMONIA [None]
